FAERS Safety Report 9661290 (Version 1)
Quarter: 2013Q4

REPORT INFORMATION
  Report Type: Spontaneous
  Country: US (occurrence: None)
  Receive Date: 20131030
  Receipt Date: 20131030
  Transmission Date: 20140711
  Serious: No
  Sender: FDA-Public Use
  Company Number: 2013136037

PATIENT
  Sex: Female

DRUGS (1)
  1. FRAGMIN (DALTEPARIN SODIUM) SOLUTION FOR INJECTION [Suspect]
     Dates: start: 20120410

REACTIONS (2)
  - Injection site pain [None]
  - Injection site bruising [None]
